FAERS Safety Report 24298522 (Version 1)
Quarter: 2024Q3

REPORT INFORMATION
  Report Type: Spontaneous
  Country: CN (occurrence: CN)
  Receive Date: 20240909
  Receipt Date: 20240909
  Transmission Date: 20241016
  Serious: Yes (Other)
  Sender: BAYER
  Company Number: CN-BAYER-2024A128467

PATIENT
  Age: 17 Year
  Sex: Female
  Weight: 53 kg

DRUGS (3)
  1. YASMIN [Suspect]
     Active Substance: DROSPIRENONE\ETHINYL ESTRADIOL
     Indication: Abnormal uterine bleeding
     Dosage: 1 DF, BID
     Route: 048
     Dates: start: 20240827, end: 20240828
  2. YASMIN [Suspect]
     Active Substance: DROSPIRENONE\ETHINYL ESTRADIOL
     Indication: Uterine disorder
  3. YASMIN [Suspect]
     Active Substance: DROSPIRENONE\ETHINYL ESTRADIOL
     Indication: Haemostasis

REACTIONS (5)
  - Dizziness [Recovered/Resolved]
  - Nausea [Recovering/Resolving]
  - Vomiting [Recovering/Resolving]
  - Chest discomfort [Recovering/Resolving]
  - Off label use [None]

NARRATIVE: CASE EVENT DATE: 20240827
